FAERS Safety Report 6438054-3 (Version None)
Quarter: 2009Q4

REPORT INFORMATION
  Report Type: 
  Country: None (occurrence: None)
  Receive Date: 20091112
  Receipt Date: 20091024
  Transmission Date: 20100525
  Serious: Yes (Death, Life-Threatening, Hospitalization, Other)
  Sender: FDA-Public Use
  Company Number: US-BRISTOL-MYERS SQUIBB COMPANY-14709059

PATIENT
  Age: 32 Year
  Sex: Male

DRUGS (8)
  1. EFAVIRENZ [Suspect]
     Indication: HIV INFECTION
     Dosage: INTERRUPTED FROM 09-JUN-2009 TO 17-JUN-2009
     Route: 048
     Dates: start: 20090323, end: 20091016
  2. TRUVADA [Suspect]
     Dosage: 1 DF = 200/300MG; INTERRUPTED FROM 09-JUN-2009 TO 17-JUN-2009 15MAY09-22OCT09
     Route: 048
     Dates: start: 20090515, end: 20091022
  3. CO-TRIMOXAZOLE [Suspect]
     Indication: PROPHYLAXIS
     Dates: start: 20090313, end: 20090713
  4. ACETAMINOPHEN [Concomitant]
     Dates: end: 20091023
  5. CEFTRIAXONE [Concomitant]
     Dates: end: 20091016
  6. FERROUS SULFATE TAB [Concomitant]
     Dates: end: 20091022
  7. FLUCONAZOLE [Concomitant]
     Dates: end: 20091023
  8. IBUPROFEN [Concomitant]
     Dates: end: 20091022

REACTIONS (6)
  - ANAEMIA [None]
  - LEUKOPENIA [None]
  - MENINGITIS CRYPTOCOCCAL [None]
  - NEUTROPHIL COUNT DECREASED [None]
  - ORAL CANDIDIASIS [None]
  - PNEUMONIA [None]
